FAERS Safety Report 7795358-X (Version None)
Quarter: 2011Q4

REPORT INFORMATION
  Report Type: 
  Country: None (occurrence: None)
  Receive Date: 20111004
  Receipt Date: 20110920
  Transmission Date: 20120403
  Serious: Yes (Death)
  Sender: FDA-Public Use
  Company Number: US-ENDO PHARMACEUTICALS INC.-METO20113244

PATIENT
  Age: 19 Year
  Sex: Male

DRUGS (3)
  1. METOCLOPRAMIDE HYDROCHLORIDE [Suspect]
     Indication: OESOPHAGITIS
  2. METOCLOPRAMIDE HYDROCHLORIDE [Suspect]
     Indication: GASTRITIS
  3. METOCLOPRAMIDE HYDROCHLORIDE [Suspect]
     Indication: GASTRIC ULCER
     Route: 048
     Dates: start: 20080612

REACTIONS (10)
  - HALLUCINATION [None]
  - FEELING ABNORMAL [None]
  - DEPRESSION [None]
  - AKATHISIA [None]
  - EXTRAPYRAMIDAL DISORDER [None]
  - COMPLETED SUICIDE [None]
  - SUICIDAL IDEATION [None]
  - INCORRECT DRUG ADMINISTRATION DURATION [None]
  - AGITATION [None]
  - MENTAL IMPAIRMENT [None]
